FAERS Safety Report 10336893 (Version 2)
Quarter: 2014Q3

REPORT INFORMATION
  Report Type: Spontaneous
  Country: IT (occurrence: IT)
  Receive Date: 20140723
  Receipt Date: 20140723
  Transmission Date: 20150326
  Serious: Yes (Other)
  Sender: FDA-Public Use
  Company Number: IT-WATSON-2014-15539

PATIENT
  Age: 85 Year
  Sex: Female

DRUGS (3)
  1. TAPENTADOL HYDROCHLORIDE [Concomitant]
     Active Substance: TAPENTADOL HYDROCHLORIDE
     Indication: PRODUCT USED FOR UNKNOWN INDICATION
     Dosage: 100 MG, UNK
     Route: 048
  2. BACTRIM [Suspect]
     Active Substance: SULFAMETHOXAZOLE\TRIMETHOPRIM
     Indication: URINARY TRACT INFECTION
     Dosage: 1920 MG, DAILY
     Route: 048
     Dates: start: 20140619, end: 20140624
  3. MIRTAZAPINE (UNKNOWN) [Suspect]
     Active Substance: MIRTAZAPINE
     Indication: DEPRESSION
     Dosage: 7.5 MG, DAILY
     Route: 048
     Dates: start: 20140616, end: 20140628

REACTIONS (2)
  - Corrosive oropharyngeal injury [Recovered/Resolved]
  - Oral mucosa erosion [Recovered/Resolved]

NARRATIVE: CASE EVENT DATE: 20140621
